FAERS Safety Report 7815845-5 (Version None)
Quarter: 2011Q4

REPORT INFORMATION
  Report Type: 
  Country: None (occurrence: None)
  Receive Date: 20111014
  Receipt Date: 20111006
  Transmission Date: 20120403
  Serious: Yes (Other)
  Sender: FDA-Public Use
  Company Number: US-US-EMD SERONO, INC.-7087990

PATIENT
  Sex: Female

DRUGS (1)
  1. REBIF [Suspect]
     Indication: MULTIPLE SCLEROSIS
     Route: 058
     Dates: start: 20110520

REACTIONS (5)
  - ANEURYSM [None]
  - VISION BLURRED [None]
  - HEADACHE [None]
  - HYPOAESTHESIA [None]
  - OPTIC NERVE DISORDER [None]
